FAERS Safety Report 14755000 (Version 2)
Quarter: 2019Q4

REPORT INFORMATION
  Report Type: Spontaneous
  Country: US (occurrence: US)
  Receive Date: 20180413
  Receipt Date: 20191028
  Transmission Date: 20200122
  Serious: Yes (Other)
  Sender: FDA-Public Use
  Company Number: US-009507513-1803USA007820

PATIENT
  Sex: Male

DRUGS (5)
  1. TURMERIC [Concomitant]
     Active Substance: HERBALS\TURMERIC
  2. PROPECIA [Suspect]
     Active Substance: FINASTERIDE
     Indication: ALOPECIA
     Dosage: 1 MG ONCE A DAY
     Route: 048
  3. MAGNESIUM (UNSPECIFIED) [Concomitant]
     Active Substance: MAGNESIUM
  4. ROZEREM [Concomitant]
     Active Substance: RAMELTEON
  5. VITAMIN D (UNSPECIFIED) [Concomitant]
     Active Substance: VITAMIN D NOS

REACTIONS (6)
  - Tongue neoplasm malignant stage unspecified [Recovered/Resolved]
  - Therapeutic product effect decreased [Unknown]
  - Hair transplant [Unknown]
  - Constipation [Recovered/Resolved]
  - Stress [Recovered/Resolved]
  - Product storage error [Unknown]

NARRATIVE: CASE EVENT DATE: 2014
